FAERS Safety Report 7414323-5 (Version None)
Quarter: 2011Q2

REPORT INFORMATION
  Report Type: 
  Country: None (occurrence: None)
  Receive Date: 20110414
  Receipt Date: 20110411
  Transmission Date: 20111010
  Serious: No
  Sender: FDA-Public Use
  Company Number: US-PFIZER INC-2011044473

PATIENT
  Sex: Female

DRUGS (3)
  1. TIMOLOL MALEATE [Suspect]
     Dosage: UNK
  2. KETOROLAC TROMETHAMINE [Suspect]
     Dosage: UNK
  3. XALATAN [Suspect]
     Indication: GLAUCOMA
     Dosage: QHS
     Route: 047
     Dates: start: 20110204, end: 20110215

REACTIONS (3)
  - EYE PRURITUS [None]
  - SKIN IRRITATION [None]
  - EYE DISCHARGE [None]
